FAERS Safety Report 24800082 (Version 1)
Quarter: 2025Q1

REPORT INFORMATION
  Report Type: Spontaneous
  Country: US (occurrence: US)
  Receive Date: 20250102
  Receipt Date: 20250102
  Transmission Date: 20250409
  Serious: Yes (Other)
  Sender: TEVA
  Company Number: US-TEVA-VS-3280200

PATIENT
  Age: 59 Year
  Sex: Female

DRUGS (2)
  1. LENALIDOMIDE [Suspect]
     Active Substance: LENALIDOMIDE
     Indication: Myelofibrosis
     Dosage: FOR 21 DAYS OF 28 DAYS CYCLE
     Route: 065
  2. PREDNISONE [Suspect]
     Active Substance: PREDNISONE
     Indication: Myelofibrosis
     Route: 065

REACTIONS (3)
  - Neutropenia [Unknown]
  - Drug ineffective [Unknown]
  - Hepatotoxicity [Unknown]
